FAERS Safety Report 8077929-9 (Version None)
Quarter: 2012Q1

REPORT INFORMATION
  Report Type: 
  Country: None (occurrence: None)
  Receive Date: 20120127
  Receipt Date: 20110105
  Transmission Date: 20120608
  Serious: No
  Sender: FDA-Public Use
  Company Number: US-ABBOTT-11P-163-0695504-00

PATIENT
  Age: 36 Year
  Sex: Male

DRUGS (5)
  1. HUMIRA [Suspect]
     Indication: CROHN'S DISEASE
     Dates: start: 20100601
  2. BC POWDER [Concomitant]
     Indication: MIGRAINE
  3. APRISO [Concomitant]
     Indication: ABDOMINAL DISCOMFORT
     Dosage: EVERY MORNING
  4. METRONIDAZOLE [Concomitant]
     Indication: ABDOMINAL DISCOMFORT
     Dosage: 3 TIMES DAILY WITH FOOD
  5. FLUOXETINE [Concomitant]
     Indication: PRODUCT USED FOR UNKNOWN INDICATION

REACTIONS (6)
  - FATIGUE [None]
  - PYREXIA [None]
  - FEELING COLD [None]
  - ASTHENIA [None]
  - INFLUENZA [None]
  - HOT FLUSH [None]
